FAERS Safety Report 21337503 (Version 2)
Quarter: 2024Q4

REPORT INFORMATION
  Report Type: Report from Study
  Country: ZA (occurrence: ZA)
  Receive Date: 20220915
  Receipt Date: 20241105
  Transmission Date: 20250115
  Serious: Yes (Other)
  Sender: NOVARTIS
  Company Number: ZA-NOVARTISPH-NVSC2022ZA207974

PATIENT
  Age: 39 Year
  Sex: Female

DRUGS (1)
  1. SIPONIMOD [Suspect]
     Active Substance: SIPONIMOD
     Indication: Secondary progressive multiple sclerosis
     Dosage: 2 MG, QD
     Route: 048
     Dates: start: 20220412

REACTIONS (5)
  - Alanine aminotransferase increased [Unknown]
  - Granulocyte percentage increased [Unknown]
  - Monocyte count increased [Unknown]
  - Granulocyte count increased [Unknown]
  - Lymphocyte count decreased [Unknown]

NARRATIVE: CASE EVENT DATE: 20220805
